FAERS Safety Report 8602664 (Version 2)
Quarter: 2012Q4

REPORT INFORMATION
  Report Type: 
  Country: AR (occurrence: AR)
  Receive Date: 20120607
  Receipt Date: 20121105
  Transmission Date: 20130627
  Serious: Yes (Hospitalization, Other)
  Sender: FDA-Public Use
  Company Number: AR-ABBOTT-12P-007-0942468-00

PATIENT
  Age: 62 Year
  Sex: Female

DRUGS (2)
  1. HUMIRA 40 MG/ 0.8 ML PRE-FILLED SYRINGE [Suspect]
     Indication: RHEUMATOID ARTHRITIS
     Route: 058
     Dates: start: 20110801
  2. UNKNOWN [Concomitant]

REACTIONS (3)
  - Depression [Recovering/Resolving]
  - Psychiatric decompensation [Recovering/Resolving]
  - Dyspnoea [Recovering/Resolving]
